FAERS Safety Report 14700116 (Version 2)
Quarter: 2018Q3

REPORT INFORMATION
  Report Type: Spontaneous
  Country: US (occurrence: US)
  Receive Date: 20180330
  Receipt Date: 20180730
  Transmission Date: 20181010
  Serious: Yes (Hospitalization, Other)
  Sender: FDA-Public Use
  Company Number: US-SA-2018SA081930

PATIENT
  Age: 47 Year
  Sex: Female

DRUGS (2)
  1. ZOLMITRIPTAN. [Suspect]
     Active Substance: ZOLMITRIPTAN
     Indication: MIGRAINE
     Dosage: UNK UNK,UNK
     Route: 065
  2. LEMTRADA [Suspect]
     Active Substance: ALEMTUZUMAB
     Dosage: UNK UNK,UNK
     Route: 041
     Dates: start: 20180312

REACTIONS (5)
  - Basal ganglia stroke [Unknown]
  - Hemiparesis [Unknown]
  - Hypoaesthesia [Unknown]
  - Dysarthria [Unknown]
  - Facial paralysis [Unknown]

NARRATIVE: CASE EVENT DATE: 20180313
